FAERS Safety Report 9912167 (Version 2)
Quarter: 2014Q3

REPORT INFORMATION
  Report Type: Other
  Country: FR (occurrence: FR)
  Receive Date: 20140220
  Receipt Date: 20140828
  Transmission Date: 20150326
  Serious: Yes (Life-Threatening)
  Sender: FDA-Public Use
  Company Number: FR-BRISTOL-MYERS SQUIBB COMPANY-20200531

PATIENT
  Age: 63 Year
  Sex: Male

DRUGS (1)
  1. CETUXIMAB [Suspect]
     Active Substance: CETUXIMAB
     Indication: SQUAMOUS CELL CARCINOMA OF SKIN
     Dosage: FOLLOWED BY SUBSEQUENT WEEKLY DOSES OF 250 MG/M2 AND 300 MG/M2,L IN 1 MONTH.

REACTIONS (5)
  - Thrombocytopenia [Unknown]
  - Lymphopenia [Unknown]
  - Folliculitis [Unknown]
  - Radiation skin injury [Unknown]
  - Anaemia [Unknown]
